FAERS Safety Report 8796424 (Version 2)
Quarter: 2012Q4

REPORT INFORMATION
  Report Type: 
  Country: US (occurrence: US)
  Receive Date: 20120920
  Receipt Date: 20121101
  Transmission Date: 20130627
  Serious: Yes (Hospitalization, Disabling, Other)
  Sender: FDA-Public Use
  Company Number: US-009507513-1112USA02421

PATIENT

DRUGS (3)
  1. FOSAMAX [Suspect]
     Indication: OSTEOPOROSIS
     Dosage: 70 mg, BIW
     Route: 048
     Dates: start: 200202, end: 2008
  2. FOSAMAX PLUS D [Suspect]
     Indication: OSTEOPOROSIS
     Dosage: 70 mg, BIW
     Route: 048
     Dates: start: 2009, end: 20110531
  3. CALCIUM (UNSPECIFIED) [Concomitant]

REACTIONS (49)
  - Large intestine polyp [Unknown]
  - Femur fracture [Unknown]
  - Vitamin A deficiency [Unknown]
  - Calcium deficiency [Unknown]
  - Bone lesion [Unknown]
  - Overdose [Unknown]
  - Overdose [Unknown]
  - Intervertebral disc degeneration [Unknown]
  - Spondylolisthesis [Not Recovered/Not Resolved]
  - Scoliosis [Unknown]
  - Contusion [Unknown]
  - Ileus [Unknown]
  - Phlebolith [Unknown]
  - Hypothyroidism [Not Recovered/Not Resolved]
  - Hypertension [Not Recovered/Not Resolved]
  - Varicose vein [Unknown]
  - Tonsillar disorder [Unknown]
  - Adenoidal disorder [Unknown]
  - Mitral valve prolapse [Unknown]
  - Cardiac murmur [Unknown]
  - Left atrial dilatation [Unknown]
  - Electrocardiogram ST-T change [Unknown]
  - Cataract [Unknown]
  - Incontinence [Unknown]
  - Eczema [Unknown]
  - Osteopenia [Unknown]
  - Lumbar spinal stenosis [Unknown]
  - Intervertebral disc protrusion [Unknown]
  - Cyst [Unknown]
  - Facet joint syndrome [Unknown]
  - Sciatica [Unknown]
  - Increased tendency to bruise [Unknown]
  - Ecchymosis [Unknown]
  - Spinal compression fracture [Unknown]
  - Lower limb fracture [Unknown]
  - Bone disorder [Unknown]
  - Venous insufficiency [Not Recovered/Not Resolved]
  - Fall [Unknown]
  - Ligament sprain [Unknown]
  - Contusion [Unknown]
  - Hypercholesterolaemia [Unknown]
  - Coronary artery disease [Unknown]
  - Ligament disorder [Unknown]
  - Diverticulum intestinal [Unknown]
  - Large intestine benign neoplasm [Unknown]
  - Oedema peripheral [Unknown]
  - Flatulence [Unknown]
  - Fibula fracture [Recovered/Resolved]
  - Tibia fracture [Recovered/Resolved]
